FAERS Safety Report 7225066-5 (Version None)
Quarter: 2011Q1

REPORT INFORMATION
  Report Type: 
  Country: None (occurrence: None)
  Receive Date: 20110107
  Receipt Date: 20110107
  Transmission Date: 20110831
  Serious: No
  Sender: FDA-Public Use
  Company Number: None

PATIENT
  Age: 65 Year
  Sex: Female
  Weight: 103.4201 kg

DRUGS (1)
  1. DDAVP [Suspect]
     Indication: HYPOPITUITARISM
     Dosage: 50 DOSES 1 SPRAY TWICE A DA NASAL
     Route: 045
     Dates: start: 20000301, end: 20101231

REACTIONS (2)
  - PRODUCT QUALITY ISSUE [None]
  - DEVICE MALFUNCTION [None]
